FAERS Safety Report 6876494-9 (Version None)
Quarter: 2010Q3

REPORT INFORMATION
  Report Type: 
  Country: None (occurrence: None)
  Receive Date: 20100727
  Receipt Date: 20100713
  Transmission Date: 20110219
  Serious: Yes (Death, Disabling)
  Sender: FDA-Public Use
  Company Number: GB-ELI_LILLY_AND_COMPANY-GB201007002597

PATIENT
  Age: 19 Year
  Sex: Male

DRUGS (3)
  1. ZYPREXA [Suspect]
     Indication: SCHIZOPHRENIA
     Dosage: 20 MG, UNKNOWN
     Route: 048
     Dates: start: 20080801
  2. IBUPROFEN TABLETS [Concomitant]
  3. ZIMOVANE [Concomitant]
     Indication: SLEEP DISORDER
     Dosage: 7.5 MG, UNK
     Route: 048

REACTIONS (2)
  - HEPATIC STEATOSIS [None]
  - SUDDEN DEATH [None]
